FAERS Safety Report 8238969-X (Version None)
Quarter: 2012Q1

REPORT INFORMATION
  Report Type: 
  Country: None (occurrence: None)
  Receive Date: 20120327
  Receipt Date: 20120315
  Transmission Date: 20120608
  Serious: Yes (Other)
  Sender: FDA-Public Use
  Company Number: PHHY2012MX023719

PATIENT
  Sex: Female

DRUGS (1)
  1. SIMULECT [Suspect]
     Route: 042

REACTIONS (1)
  - GENERAL PHYSICAL HEALTH DETERIORATION [None]
